FAERS Safety Report 14518693 (Version 1)
Quarter: 2018Q1

REPORT INFORMATION
  Report Type: Spontaneous
  Country: US (occurrence: US)
  Receive Date: 20180212
  Receipt Date: 20180212
  Transmission Date: 20180509
  Serious: Yes (Other)
  Sender: FDA-Public Use
  Company Number: US-THE MENTHOLATUM COMPANY-2041789

PATIENT
  Sex: Female

DRUGS (1)
  1. MENTHOLATUM NATURAL ICE CHERRY [Suspect]
     Active Substance: DIMETHICONE\OCTINOXATE\OCTISALATE
     Route: 061
     Dates: start: 20180118, end: 20180120

REACTIONS (1)
  - Lip blister [Unknown]

NARRATIVE: CASE EVENT DATE: 20180120
